FAERS Safety Report 9372179 (Version 1)
Quarter: 2013Q2

REPORT INFORMATION
  Report Type: Report from Study
  Country: US (occurrence: US)
  Receive Date: 20130627
  Receipt Date: 20130627
  Transmission Date: 20140414
  Serious: Yes (Hospitalization)
  Sender: FDA-Public Use
  Company Number: US-MYLANLABS-2012S1016420

PATIENT
  Age: 28 Year
  Sex: Female
  Weight: 81.65 kg

DRUGS (1)
  1. CLOZAPINE TABLETS [Suspect]
     Indication: SCHIZOPHRENIA
     Route: 048
     Dates: start: 20120621, end: 20120802

REACTIONS (2)
  - Pneumonia [Recovered/Resolved]
  - Granulocytopenia [Recovered/Resolved]
